FAERS Safety Report 7045567-2 (Version None)
Quarter: 2010Q3

REPORT INFORMATION
  Report Type: 
  Country: None (occurrence: None)
  Receive Date: 20100929
  Receipt Date: 20100726
  Transmission Date: 20110219
  Serious: No
  Sender: FDA-Public Use
  Company Number: US-WYE-H16684610

PATIENT
  Age: 63 Year
  Sex: Female
  Weight: 63.56 kg

DRUGS (4)
  1. PRISTIQ [Suspect]
     Indication: DECREASED INTEREST
     Dosage: 50 MG 1X PER 1 DAY, ORAL
     Route: 048
     Dates: start: 20100601
  2. PRISTIQ [Suspect]
     Indication: FATIGUE
     Dosage: 50 MG 1X PER 1 DAY, ORAL
     Route: 048
     Dates: start: 20100601
  3. PRISTIQ [Suspect]
     Indication: MALAISE
     Dosage: 50 MG 1X PER 1 DAY, ORAL
     Route: 048
     Dates: start: 20100601
  4. PRAVASTATIN [Concomitant]

REACTIONS (1)
  - HEADACHE [None]
